FAERS Safety Report 6169771-0 (Version None)
Quarter: 2009Q2

REPORT INFORMATION
  Report Type: 
  Country: None (occurrence: None)
  Receive Date: 20090428
  Receipt Date: 20090415
  Transmission Date: 20091009
  Serious: Yes (Hospitalization)
  Sender: FDA-Public Use
  Company Number: DE-AMGEN-UK342943

PATIENT
  Sex: Female

DRUGS (5)
  1. ARANESP [Suspect]
     Indication: ANAEMIA OF MALIGNANT DISEASE
     Route: 058
     Dates: start: 20090126
  2. SPIRONOLACTONE [Concomitant]
     Route: 048
  3. ALLOPURINOL [Concomitant]
     Route: 048
     Dates: start: 20090406
  4. TORASEMIDE [Concomitant]
     Route: 048
  5. PANCREATIN [Concomitant]
     Route: 048

REACTIONS (1)
  - MYOCARDIAL INFARCTION [None]
